FAERS Safety Report 6275338-6 (Version None)
Quarter: 2009Q3

REPORT INFORMATION
  Report Type: 
  Country: None (occurrence: None)
  Receive Date: 20090721
  Receipt Date: 20090715
  Transmission Date: 20100115
  Serious: Yes (Hospitalization)
  Sender: FDA-Public Use
  Company Number: B0584059A

PATIENT
  Sex: Female

DRUGS (5)
  1. AUGMENTIN '125' [Suspect]
     Indication: SINUSITIS
     Dosage: 500MG UNKNOWN
     Route: 048
     Dates: start: 20090504, end: 20090512
  2. SOLUPRED [Suspect]
     Indication: SINUSITIS
     Route: 048
     Dates: start: 20090504, end: 20090509
  3. PRIMALAN [Suspect]
     Route: 048
     Dates: start: 20090519, end: 20090605
  4. NASONEX [Suspect]
     Dosage: 50MCG UNKNOWN
     Route: 045
     Dates: start: 20090331
  5. BETASERC [Suspect]
     Dosage: 24MG UNKNOWN
     Route: 048
     Dates: start: 20090331

REACTIONS (12)
  - BLOOD BILIRUBIN INCREASED [None]
  - CHOLESTASIS [None]
  - CHROMATURIA [None]
  - CONSTIPATION [None]
  - FAECES DISCOLOURED [None]
  - HEPATITIS [None]
  - JAUNDICE [None]
  - LYMPHADENOPATHY [None]
  - NAUSEA [None]
  - PRURITUS [None]
  - PRURITUS GENERALISED [None]
  - WEIGHT DECREASED [None]
